FAERS Safety Report 7556622-2 (Version None)
Quarter: 2011Q2

REPORT INFORMATION
  Report Type: 
  Country: None (occurrence: None)
  Receive Date: 20110610
  Receipt Date: 20110602
  Transmission Date: 20111010
  Serious: Yes (Other)
  Sender: FDA-Public Use
  Company Number: 2010SP063641

PATIENT
  Age: 53 Year
  Sex: Female

DRUGS (5)
  1. DIAMORPHINE (DIAMORPHINE) [Suspect]
     Indication: SPINAL ANAESTHESIA
     Dosage: 300 MCG;
  2. DEXAMETHASONE [Suspect]
     Indication: PRODUCT USED FOR UNKNOWN INDICATION
  3. BENDROFLUAZIDE [Concomitant]
  4. ESTRADIOL [Suspect]
     Indication: PRODUCT USED FOR UNKNOWN INDICATION
  5. BUPIVACAINE (BUPIVACAINE) [Suspect]
     Indication: SPINAL ANAESTHESIA
     Dosage: 2.5 ML;

REACTIONS (2)
  - VITAMIN B12 DECREASED [None]
  - MYOCLONUS [None]
